FAERS Safety Report 6299462 (Version 2)
Quarter: 2020Q3

REPORT INFORMATION
  Report Type: Report from Study
  Country: ZA (occurrence: ZA)
  Receive Date: 20070430
  Receipt Date: 20070503
  Transmission Date: 20201105
  Serious: Yes (Death)
  Sender: FDA-Public Use
  Company Number: ZA-JNJFOC-20070405377

PATIENT
  Age: 54 Year
  Sex: Female
  Weight: 70 kg

DRUGS (3)
  1. PALIPERIDONE. [Suspect]
     Active Substance: PALIPERIDONE
     Route: 048
  2. PALIPERIDONE. [Suspect]
     Active Substance: PALIPERIDONE
     Indication: BIPOLAR I DISORDER
     Route: 048
  3. LORAZEPAM. [Concomitant]
     Active Substance: LORAZEPAM
     Indication: INSOMNIA
     Route: 048

REACTIONS (1)
  - Death [Fatal]

NARRATIVE: CASE EVENT DATE: 20070418
